FAERS Safety Report 10280813 (Version 1)
Quarter: 2014Q3

REPORT INFORMATION
  Report Type: Spontaneous
  Country: CN (occurrence: CN)
  Receive Date: 20140707
  Receipt Date: 20140707
  Transmission Date: 20150326
  Serious: Yes (Death, Hospitalization)
  Sender: FDA-Public Use
  Company Number: CN-SA-2014SA085557

PATIENT
  Age: 71 Year
  Sex: Male
  Weight: 70 kg

DRUGS (4)
  1. DOCETAXEL [Suspect]
     Active Substance: DOCETAXEL
     Indication: LUNG NEOPLASM MALIGNANT
     Dosage: ROUTE- INFUSION, DAY 1 AND DAY 8; TAXOTERE.
     Dates: start: 20130416, end: 20130416
  2. CARBOPLATIN. [Concomitant]
     Active Substance: CARBOPLATIN
     Indication: LUNG NEOPLASM MALIGNANT
     Dosage: DAY 1
     Dates: start: 20130416, end: 20130416
  3. DOCETAXEL [Suspect]
     Active Substance: DOCETAXEL
     Indication: LUNG NEOPLASM MALIGNANT
     Route: 065
     Dates: start: 20130324
  4. CISPLATIN. [Concomitant]
     Active Substance: CISPLATIN
     Indication: CHEMOTHERAPY
     Dates: start: 2013

REACTIONS (21)
  - Pneumonia [Unknown]
  - Heart rate increased [Unknown]
  - Breath sounds abnormal [Unknown]
  - Dyspnoea [Fatal]
  - Lung infection [Unknown]
  - Pleural effusion [Unknown]
  - Heart rate irregular [Fatal]
  - Orthopnoea [Unknown]
  - Blood bicarbonate decreased [Fatal]
  - Body temperature decreased [Fatal]
  - Cough [Unknown]
  - Blood pressure fluctuation [Fatal]
  - Oxygen saturation decreased [Fatal]
  - Productive cough [Unknown]
  - Pyrexia [Unknown]
  - Asthma [Unknown]
  - Respiratory failure [Fatal]
  - Venous oxygen partial pressure decreased [Fatal]
  - Rales [Unknown]
  - Chest discomfort [Fatal]
  - Circulatory collapse [Fatal]

NARRATIVE: CASE EVENT DATE: 2013
